FAERS Safety Report 5492637-6 (Version None)
Quarter: 2007Q4

REPORT INFORMATION
  Report Type: 
  Country: None (occurrence: None)
  Receive Date: 20071022
  Receipt Date: 20071003
  Transmission Date: 20080405
  Serious: Yes (Hospitalization)
  Sender: FDA-Public Use
  Company Number: NL-GENENTECH-249872

PATIENT
  Age: 59 Year
  Sex: Male

DRUGS (8)
  1. RITUXAN [Suspect]
     Indication: B-CELL LYMPHOMA
     Dosage: 375 MG/M2, X6
  2. CYCLOPHOSPHAMIDE [Concomitant]
     Indication: B-CELL LYMPHOMA
     Dosage: 750 MG/M2, X6
  3. DOXORUBICIN HCL [Concomitant]
     Indication: B-CELL LYMPHOMA
     Dosage: 50 MG/M2, X6
  4. VINCRISTINE [Concomitant]
     Indication: B-CELL LYMPHOMA
     Dosage: 1.4 MG/M2, X5 DAYS
  5. PREDNISOLONE [Concomitant]
     Indication: B-CELL LYMPHOMA
     Dosage: 100 MG, X6
  6. FLUDARABINE PHOSPHATE [Concomitant]
     Indication: B-CELL LYMPHOMA
     Dates: start: 20041101
  7. ATG (RABBIT) [Concomitant]
     Indication: BONE MARROW TRANSPLANT
     Dosage: 8 MG/KG, UNK
  8. FLUDARABINE PHOSPHATE [Concomitant]
     Indication: BONE MARROW TRANSPLANT
     Dosage: 90 MG/M2, UNK

REACTIONS (1)
  - CYTOMEGALOVIRUS INFECTION [None]
